FAERS Safety Report 8964396 (Version 1)
Quarter: 2012Q4

REPORT INFORMATION
  Report Type: 
  Country: US (occurrence: US)
  Receive Date: 20121214
  Receipt Date: 20121214
  Transmission Date: 20130627
  Serious: No
  Sender: FDA-Public Use
  Company Number: US-GLAXOSMITHKLINE-A0980811A

PATIENT
  Sex: Male

DRUGS (5)
  1. AVODART [Suspect]
     Dates: start: 2010
  2. FUROSEMIDE [Concomitant]
  3. POTASSIUM [Concomitant]
  4. PHENYTOIN SODIUM [Concomitant]
  5. HYDROCHLOROTHIAZIDE [Concomitant]

REACTIONS (1)
  - Blister [Not Recovered/Not Resolved]
